FAERS Safety Report 10060296 (Version 3)
Quarter: 2015Q1

REPORT INFORMATION
  Report Type: Report from Study
  Country: MX (occurrence: MX)
  Receive Date: 20140404
  Receipt Date: 20150130
  Transmission Date: 20150720
  Serious: Yes (Disabling, Other)
  Sender: FDA-Public Use
  Company Number: PHHY2014MX038537

PATIENT
  Age: 78 Year
  Sex: Female

DRUGS (9)
  1. OMEPRAZOLE. [Concomitant]
     Active Substance: OMEPRAZOLE
     Indication: ABDOMINAL DISCOMFORT
     Dosage: 0.5 DF, QD
     Route: 065
     Dates: start: 2009
  2. ONBREZ [Suspect]
     Active Substance: INDACATEROL
     Indication: PNEUMOCOCCAL INFECTION
     Dosage: 150 UG, QD
     Route: 055
     Dates: start: 201011
  3. LIVIAL [Concomitant]
     Active Substance: TIBOLONE
     Indication: HORMONE LEVEL ABNORMAL
     Dosage: 3 WEEK (7 YEARS AGO)
     Route: 065
     Dates: start: 2009
  4. GLUCOSALINA [Concomitant]
     Active Substance: GLUCOSE, LIQUID\SODIUM CHLORIDE
     Indication: ULCER
     Dosage: 1 DF, QD (ABOUT 3 OR 4 YEARS)
     Route: 065
  5. CALTRATE [Concomitant]
     Active Substance: CALCIUM CARBONATE
     Indication: BONE DISORDER
     Dosage: 2 DF, (1 IN THE MORNING AND 1 AT NIGHT, 6 YEARS AGO)
     Route: 065
     Dates: start: 2009
  6. ATORVASTATIN [Concomitant]
     Active Substance: ATORVASTATIN
     Indication: HYPOVITAMINOSIS
     Dosage: 2 DF, (1 IN THE MORNING AND 1 AT NIGHT, 4 MONTHS AGO)
     Route: 065
  7. ASPIRIN PROTECT [Concomitant]
     Active Substance: ASPIRIN
     Indication: INFARCTION
     Dosage: 1 DF, (AT NIGHT, 1 MONTH AGO)
     Route: 065
  8. GLUCOPHAGE [Concomitant]
     Active Substance: METFORMIN HYDROCHLORIDE
     Indication: BLOOD GLUCOSE ABNORMAL
     Dosage: 0.5 DF, QD (IN THE MORNING, 7 YEARS AGO)
     Route: 065
     Dates: start: 2004
  9. HYZAAR [Concomitant]
     Active Substance: HYDROCHLOROTHIAZIDE\LOSARTAN POTASSIUM
     Indication: NERVE INJURY
     Dosage: 0.5 DF, QD (4 YEARS AGO)
     Route: 065

REACTIONS (10)
  - Blindness unilateral [Not Recovered/Not Resolved]
  - Intraocular pressure increased [Recovered/Resolved]
  - Product use issue [Not Recovered/Not Resolved]
  - Fall [Unknown]
  - Gait disturbance [Not Recovered/Not Resolved]
  - Eye infection [Unknown]
  - Hip fracture [Not Recovered/Not Resolved]
  - Hypoacusis [Not Recovered/Not Resolved]
  - Eye disorder [Not Recovered/Not Resolved]
  - Arthralgia [Not Recovered/Not Resolved]

NARRATIVE: CASE EVENT DATE: 201011
